FAERS Safety Report 8153683-7 (Version None)
Quarter: 2012Q1

REPORT INFORMATION
  Report Type: 
  Country: None (occurrence: None)
  Receive Date: 20120221
  Receipt Date: 20120210
  Transmission Date: 20120608
  Serious: Yes (Death, Life-Threatening, Hospitalization)
  Sender: FDA-Public Use
  Company Number: SK-ALEXION PHARMACEUTICALS INC.-A201200077

PATIENT
  Sex: Male

DRUGS (11)
  1. CORTICOSTEROIDS [Suspect]
     Indication: HAEMOGLOBINURIA
  2. SPORANOX [Concomitant]
     Indication: PROPHYLAXIS
     Dosage: 200 MG, BID
     Route: 048
     Dates: start: 20120102, end: 20120110
  3. SPIRONOLACTONE [Concomitant]
     Indication: ASCITES
     Dosage: 50 MG, BID
     Route: 048
     Dates: start: 20111201, end: 20111231
  4. FRAXIPARINE [Concomitant]
     Indication: THROMBOSIS PROPHYLAXIS
     Dosage: 0.4 ML, UNK
     Route: 058
     Dates: start: 20111201
  5. SOLIRIS [Suspect]
     Indication: PAROXYSMAL NOCTURNAL HAEMOGLOBINURIA
     Dosage: 600 MG, QW
     Route: 042
     Dates: start: 20111222, end: 20111228
  6. OMEPRAZOLE [Concomitant]
     Indication: PROPHYLAXIS
     Dosage: 20 MG, UNK
     Route: 048
     Dates: start: 20090901
  7. TRANDOLAPRIL [Concomitant]
     Indication: HYPERTENSION
     Dosage: 2 MG, UNK
     Route: 048
     Dates: start: 20111201, end: 20111231
  8. ANTIHYPERTENSIVES [Concomitant]
     Indication: HYPERTENSION
     Dosage: 5 MG, BID
     Route: 048
     Dates: start: 20111201, end: 20111231
  9. MEDROL [Suspect]
     Indication: PAROXYSMAL NOCTURNAL HAEMOGLOBINURIA
     Dosage: 16 MG, UNK
     Route: 048
     Dates: start: 20090901
  10. CODEINE SULFATE [Concomitant]
     Indication: COUGH
     Dosage: 30 MG, BID
     Route: 048
     Dates: start: 20111201, end: 20111231
  11. NEUROL [Concomitant]
     Indication: ANXIETY
     Dosage: 0.5 MG, TID
     Route: 048
     Dates: start: 20111201, end: 20111231

REACTIONS (12)
  - PANCYTOPENIA [None]
  - DEHYDRATION [None]
  - GASTRIC HAEMORRHAGE [None]
  - RENAL FAILURE ACUTE [None]
  - CYTOMEGALOVIRUS TEST POSITIVE [None]
  - DISORIENTATION [None]
  - ACUTE RESPIRATORY DISTRESS SYNDROME [None]
  - BRONCHOPNEUMONIA [None]
  - SEPSIS [None]
  - ENTEROCOLITIS [None]
  - MELAENA [None]
  - RESPIRATORY FAILURE [None]
